FAERS Safety Report 21054826 (Version 1)
Quarter: 2022Q3

REPORT INFORMATION
  Report Type: Spontaneous
  Country: FR (occurrence: FR)
  Receive Date: 20220707
  Receipt Date: 20220707
  Transmission Date: 20221027
  Serious: Yes (Death)
  Sender: FDA-Public Use
  Company Number: None

PATIENT
  Age: 66 Year
  Sex: Male
  Weight: 65 kg

DRUGS (1)
  1. PACLITAXEL [Suspect]
     Active Substance: PACLITAXEL
     Indication: Lung adenocarcinoma
     Dates: start: 20220517, end: 20220617

REACTIONS (1)
  - Infusion related reaction [Fatal]

NARRATIVE: CASE EVENT DATE: 20220617
